FAERS Safety Report 6180086-7 (Version None)
Quarter: 2009Q2

REPORT INFORMATION
  Report Type: 
  Country: None (occurrence: None)
  Receive Date: 20090505
  Receipt Date: 20080313
  Transmission Date: 20091009
  Serious: No
  Sender: FDA-Public Use
  Company Number: US-BAYER-200613639BWH

PATIENT
  Age: 71 Year
  Sex: Female
  Weight: 88 kg

DRUGS (9)
  1. NEXAVAR [Suspect]
     Dosage: TOTAL DAILY DOSE: 800 MG  UNIT DOSE: 200 MG
     Route: 048
     Dates: start: 20060201
  2. NEXAVAR [Suspect]
     Dosage: TOTAL DAILY DOSE: 800 MG  UNIT DOSE: 200 MG
     Route: 048
  3. ZESTRIL [Concomitant]
  4. PROZAC [Concomitant]
  5. LORAZEPAM [Concomitant]
  6. RITALIN [Concomitant]
  7. METOPROLOL TARTRATE [Concomitant]
  8. LIPITOR [Concomitant]
  9. TYLENOL (CAPLET) [Concomitant]

REACTIONS (9)
  - ASTHENIA [None]
  - BLOOD PRESSURE FLUCTUATION [None]
  - CONSTIPATION [None]
  - DECREASED APPETITE [None]
  - DEHYDRATION [None]
  - DEPRESSION [None]
  - DIARRHOEA [None]
  - HEART RATE IRREGULAR [None]
  - NAUSEA [None]
